FAERS Safety Report 8012488-8 (Version None)
Quarter: 2011Q4

REPORT INFORMATION
  Report Type: 
  Country: None (occurrence: None)
  Receive Date: 20111229
  Receipt Date: 20111216
  Transmission Date: 20120403
  Serious: Yes (Hospitalization, Other)
  Sender: FDA-Public Use
  Company Number: US-ROCHE-1023087

PATIENT
  Age: 44 Year
  Sex: Female

DRUGS (2)
  1. XELODA [Suspect]
     Indication: BREAST CANCER METASTATIC
  2. HERCEPTIN [Suspect]
     Indication: BREAST CANCER METASTATIC

REACTIONS (4)
  - DISEASE PROGRESSION [None]
  - HAEMOGLOBIN DECREASED [None]
  - DEPRESSION [None]
  - RENAL DISORDER [None]
